FAERS Safety Report 13396822 (Version 1)
Quarter: 2017Q2

REPORT INFORMATION
  Report Type: Spontaneous
  Country: JP (occurrence: JP)
  Receive Date: 20170403
  Receipt Date: 20170403
  Transmission Date: 20170830
  Serious: Yes (Death, Hospitalization)
  Sender: FDA-Public Use
  Company Number: JP-CELGENEUS-JPN-2016126312

PATIENT
  Age: 69 Year
  Sex: Female

DRUGS (2)
  1. VIDAZA [Suspect]
     Active Substance: AZACITIDINE
     Indication: MYELODYSPLASTIC SYNDROME
     Dosage: 100MG
     Route: 041
     Dates: start: 20150502, end: 20150518
  2. VIDAZA [Suspect]
     Active Substance: AZACITIDINE
     Dosage: 100MG
     Route: 041
     Dates: start: 20160104, end: 20160108

REACTIONS (1)
  - Interstitial lung disease [Fatal]

NARRATIVE: CASE EVENT DATE: 20160225
